FAERS Safety Report 17090606 (Version 3)
Quarter: 2022Q1

REPORT INFORMATION
  Report Type: Spontaneous
  Country: US (occurrence: US)
  Receive Date: 20191129
  Receipt Date: 20220222
  Transmission Date: 20220423
  Serious: No
  Sender: FDA-Public Use
  Company Number: US-UCBSA-2018026463

PATIENT
  Sex: Male
  Weight: 82 kg

DRUGS (2)
  1. KEPPRA [Suspect]
     Active Substance: LEVETIRACETAM
     Indication: Seizure
     Dosage: 500 MG, 2X/DAY (BID)
  2. DILANTIN [Concomitant]
     Active Substance: PHENYTOIN
     Indication: Seizure
     Dosage: UNK

REACTIONS (3)
  - Irritability [Unknown]
  - Fatigue [Unknown]
  - Taste disorder [Unknown]
